FAERS Safety Report 24986683 (Version 2)
Quarter: 2025Q1

REPORT INFORMATION
  Report Type: Spontaneous
  Country: JP (occurrence: JP)
  Receive Date: 20250219
  Receipt Date: 20250312
  Transmission Date: 20250409
  Serious: Yes (Hospitalization, Other)
  Sender: UCB
  Company Number: JP-UCBJ-CD202502232UCBPHAPROD

PATIENT
  Age: 68 Year
  Sex: Female

DRUGS (1)
  1. VIMPAT [Suspect]
     Active Substance: LACOSAMIDE
     Indication: Product used for unknown indication
     Route: 048

REACTIONS (7)
  - Coma [Unknown]
  - Ventricular tachycardia [Unknown]
  - Hypotension [Unknown]
  - Toxicity to various agents [Unknown]
  - Ventricular extrasystoles [Unknown]
  - Bradycardia [Unknown]
  - Overdose [Unknown]
